FAERS Safety Report 5840406-7 (Version None)
Quarter: 2008Q3

REPORT INFORMATION
  Report Type: 
  Country: None (occurrence: None)
  Receive Date: 20080811
  Receipt Date: 20080730
  Transmission Date: 20090109
  Serious: Yes (Hospitalization, Other)
  Sender: FDA-Public Use
  Company Number: DE-AMGEN-UK294601

PATIENT
  Sex: Female

DRUGS (4)
  1. NEUPOGEN [Suspect]
     Indication: NEUTROPENIA
     Route: 058
     Dates: start: 20080102, end: 20080115
  2. TAXOTERE [Suspect]
     Route: 042
     Dates: start: 20071227, end: 20071227
  3. DOXORUBICIN HCL [Suspect]
     Route: 042
     Dates: start: 20071227, end: 20071227
  4. CYCLOPHOSPHAMIDE [Concomitant]
     Route: 042
     Dates: start: 20071227, end: 20071227

REACTIONS (4)
  - ANAEMIA [None]
  - CARDIAC FAILURE [None]
  - LEUKOPENIA [None]
  - PNEUMONIA HERPES VIRAL [None]
